FAERS Safety Report 20451077 (Version 1)
Quarter: 2022Q1

REPORT INFORMATION
  Report Type: Spontaneous
  Country: US (occurrence: None)
  Receive Date: 20220209
  Receipt Date: 20220209
  Transmission Date: 20220423
  Serious: Yes (Hospitalization)
  Sender: FDA-Public Use
  Company Number: None

PATIENT
  Age: 89 Year
  Sex: Female
  Weight: 54 kg

DRUGS (11)
  1. LETAIRIS [Suspect]
     Active Substance: AMBRISENTAN
     Indication: Pulmonary arterial hypertension
     Dosage: FREQUENCY : DAILY;?
     Route: 048
     Dates: start: 20190405
  2. BUDESONIDE [Concomitant]
     Active Substance: BUDESONIDE
  3. FUROSEMIDE [Concomitant]
     Active Substance: FUROSEMIDE
  4. LISINOPRIL [Concomitant]
     Active Substance: LISINOPRIL
  5. SIMVASTATIN [Concomitant]
     Active Substance: SIMVASTATIN
  6. ELIQUIS [Concomitant]
     Active Substance: APIXABAN
  7. POTASSIUM [Concomitant]
     Active Substance: POTASSIUM
  8. REVATIO [Concomitant]
     Active Substance: SILDENAFIL CITRATE
  9. UPTRAVI [Concomitant]
     Active Substance: SELEXIPAG
  10. CARDIZEM [Concomitant]
     Active Substance: DILTIAZEM HYDROCHLORIDE
  11. SILDENAFIL [Concomitant]
     Active Substance: SILDENAFIL

REACTIONS (4)
  - Fall [None]
  - Head injury [None]
  - Joint injury [None]
  - Atrial fibrillation [None]

NARRATIVE: CASE EVENT DATE: 20220128
